FAERS Safety Report 18071205 (Version 6)
Quarter: 2020Q3

REPORT INFORMATION
  Report Type: Report from Study
  Country: None (occurrence: US)
  Receive Date: 20200727
  Receipt Date: 20200930
  Transmission Date: 20201103
  Serious: Yes (Other)
  Sender: FDA-Public Use
  Company Number: US-BIOVITRUM-2020US3895

PATIENT
  Age: 44 Year
  Sex: Female

DRUGS (6)
  1. ATIVAN [Concomitant]
     Active Substance: LORAZEPAM
  2. BUSPIRONE [Concomitant]
     Active Substance: BUSPIRONE HYDROCHLORIDE
  3. PROZAC [Concomitant]
     Active Substance: FLUOXETINE HYDROCHLORIDE
  4. CITALOPRAM [Concomitant]
     Active Substance: CITALOPRAM HYDROBROMIDE
  5. KINERET [Suspect]
     Active Substance: ANAKINRA
     Indication: PYREXIA
     Route: 058
     Dates: start: 20200714
  6. METOPROLOL. [Concomitant]
     Active Substance: METOPROLOL

REACTIONS (13)
  - Oral pain [Unknown]
  - Illness [Unknown]
  - Oedema peripheral [Unknown]
  - Injection site pruritus [Unknown]
  - Injection site pain [Unknown]
  - Thrombosis [Unknown]
  - Red blood cell sedimentation rate decreased [Unknown]
  - Urinary tract infection [Unknown]
  - Injection site urticaria [Unknown]
  - Off label use [Unknown]
  - Infection [Unknown]
  - C-reactive protein decreased [Unknown]
  - Tooth infection [Unknown]

NARRATIVE: CASE EVENT DATE: 20200714
